FAERS Safety Report 13746234 (Version 5)
Quarter: 2017Q3

REPORT INFORMATION
  Report Type: Spontaneous
  Country: FR (occurrence: FR)
  Receive Date: 20170712
  Receipt Date: 20170726
  Transmission Date: 20171127
  Serious: Yes (Hospitalization)
  Sender: FDA-Public Use
  Company Number: FR-PFIZER INC-2017295011

PATIENT
  Age: 57 Year
  Sex: Male
  Weight: 55 kg

DRUGS (26)
  1. XANAX [Suspect]
     Active Substance: ALPRAZOLAM
     Indication: ANXIETY
     Dosage: 0.25 MG, SINGLE
     Route: 048
  2. PIPERACILLIN AND TAZOBACTAM [Suspect]
     Active Substance: PIPERACILLIN SODIUM\TAZOBACTAM SODIUM
     Indication: ANTIBIOTIC THERAPY
     Dosage: 4 G, 1X/DAY
     Route: 042
     Dates: start: 20170612, end: 20170614
  3. LASILIX /00032601/ [Suspect]
     Active Substance: FUROSEMIDE
     Indication: ACUTE PULMONARY OEDEMA
     Dosage: 40 TO 120MG, DAILY
     Route: 042
     Dates: start: 20170616, end: 20170620
  4. SEDORRHOIDE /00967801/ [Suspect]
     Active Substance: BENZOCAINE\BUTAMBEN\DODECLONIUM\ENOXOLONE\ESCULIN
     Indication: HAEMORRHOIDS
     Dosage: 2 DF, 1X/DAY
     Route: 054
     Dates: start: 20170613, end: 20170619
  5. TENORMIN [Suspect]
     Active Substance: ATENOLOL
     Dosage: 0.25 MG, 1X/DAY
     Route: 048
     Dates: start: 20170620
  6. FORTUM /00559701/ [Suspect]
     Active Substance: CEFTAZIDIME
     Indication: ANTIBIOTIC THERAPY
     Dosage: 6 G, 1X/DAY
     Route: 042
     Dates: start: 20170614, end: 20170619
  7. TIENAM [Suspect]
     Active Substance: CILASTATIN SODIUM\IMIPENEM
     Indication: ANTIBIOTIC THERAPY
     Dosage: 1000 MG, 1X/DAY
     Route: 042
     Dates: start: 20170619, end: 20170620
  8. PRIMPERAN [Suspect]
     Active Substance: METOCLOPRAMIDE HYDROCHLORIDE
     Indication: NAUSEA
     Dosage: 10 MG, 1X/DAY
     Route: 048
     Dates: start: 20170613, end: 20170621
  9. PARACETAMOL B. BRAUN [Suspect]
     Active Substance: ACETAMINOPHEN
     Indication: ANALGESIC INTERVENTION SUPPORTIVE THERAPY
     Dosage: 2 G, 1X/DAY
     Route: 042
     Dates: start: 20170617, end: 20170618
  10. PARACETAMOL [Concomitant]
     Active Substance: ACETAMINOPHEN
     Dosage: UNK UNK, 1X/DAY
     Route: 042
  11. ARACYTINE [Suspect]
     Active Substance: CYTARABINE
     Dosage: 340 MG, 1X/DAY
     Route: 042
     Dates: start: 20170614
  12. CANCIDAS [Suspect]
     Active Substance: CASPOFUNGIN ACETATE
     Indication: FUNGAL INFECTION
     Dosage: 50 MG, 1X/DAY
     Route: 042
     Dates: start: 20170618, end: 20170620
  13. CYCLO 3 FORT [Suspect]
     Active Substance: ASCORBIC ACID\HESPERIDIN METHYLCHALCONE\RUSCUS ACULEATUS ROOT
     Indication: HAEMORRHOIDS
     Dosage: 3 DF, 1X/DAY
     Route: 048
     Dates: start: 20170608, end: 20170618
  14. PARACETAMOL CODEINE [Concomitant]
     Active Substance: ACETAMINOPHEN\CODEINE PHOSPHATE
     Dosage: DOSAGE FORM: UNSPECIFIED
  15. ALDACTONE [Suspect]
     Active Substance: SPIRONOLACTONE
     Indication: OEDEMA
     Dosage: 75 MG, 1X/DAY
     Route: 048
     Dates: start: 20170619
  16. VIALEBEX [Suspect]
     Active Substance: ALBUMIN HUMAN
     Indication: OEDEMA
     Dosage: 1 DF, 1X/DAY
     Route: 042
     Dates: start: 20170619
  17. TRIFLUCAN [Suspect]
     Active Substance: FLUCONAZOLE
     Indication: CHEMOTHERAPY
     Dosage: 1 DF, 1X/DAY
     Route: 042
     Dates: start: 20170614, end: 20170617
  18. VANCOMYCINE SANDOZ [Suspect]
     Active Substance: VANCOMYCIN
     Indication: ANTIBIOTIC THERAPY
     Dosage: DOSAGE FORM: POWDER, 2.5 TO 4 MG DAILY
     Route: 042
     Dates: start: 20170610, end: 20170619
  19. ZYVOXID [Suspect]
     Active Substance: LINEZOLID
     Indication: ANTIBIOTIC THERAPY
     Dosage: 1200 MG, 1X/DAY
     Route: 042
     Dates: start: 20170619, end: 20170620
  20. IDARUBICINE MYLAN [Suspect]
     Active Substance: IDARUBICIN
     Indication: ACUTE MYELOID LEUKAEMIA
     Dosage: 30 MG, 1X/DAY
     Route: 042
     Dates: start: 20170608, end: 20170612
  21. OROZAMUDOL [Suspect]
     Active Substance: TRAMADOL
     Indication: ANALGESIC INTERVENTION SUPPORTIVE THERAPY
     Dosage: 50 MG, 2X/DAY
     Route: 048
     Dates: start: 20170611, end: 20170620
  22. CODEINE [Concomitant]
     Active Substance: CODEINE
  23. ARACYTINE [Suspect]
     Active Substance: CYTARABINE
     Indication: ACUTE MYELOID LEUKAEMIA
     Dosage: 340 MG, 1X/DAY
     Route: 042
     Dates: start: 20170608, end: 20170614
  24. ZOVIRAX [Suspect]
     Active Substance: ACYCLOVIR
     Indication: ANTIVIRAL TREATMENT
     Dosage: 250 TO 500MG, DAILY
     Route: 042
     Dates: start: 20170613, end: 20170621
  25. TOPALGIC (TRAMADOL HYDROCHLORIDE) [Suspect]
     Active Substance: TRAMADOL HYDROCHLORIDE
     Indication: ANALGESIC INTERVENTION SUPPORTIVE THERAPY
     Dosage: 200 TO 400MG, DAILY
     Route: 042
     Dates: start: 20170611, end: 20170620
  26. VITAMIN K [Suspect]
     Active Substance: PHYTONADIONE
     Indication: ELECTROLYTE SUBSTITUTION THERAPY
     Dosage: 1 DF, 1X/DAY (INTERMITTENTLY)
     Route: 048
     Dates: start: 20170607, end: 20170619

REACTIONS (3)
  - Hyperbilirubinaemia [Not Recovered/Not Resolved]
  - Extrapyramidal disorder [Recovering/Resolving]
  - Atrial fibrillation [Recovering/Resolving]

NARRATIVE: CASE EVENT DATE: 20170619
